FAERS Safety Report 16077467 (Version 1)
Quarter: 2019Q1

REPORT INFORMATION
  Report Type: Spontaneous
  Country: US (occurrence: US)
  Receive Date: 20190315
  Receipt Date: 20190315
  Transmission Date: 20190418
  Serious: No
  Sender: FDA-Public Use
  Company Number: US-009507513-1903USA001578

PATIENT
  Age: 65 Year
  Sex: Female
  Weight: 72 kg

DRUGS (1)
  1. RIZATRIPTAN BENZOATE. [Suspect]
     Active Substance: RIZATRIPTAN BENZOATE
     Dosage: UNK, 9 TABLETS
     Route: 048

REACTIONS (1)
  - Drug ineffective [Unknown]
